FAERS Safety Report 6855796-6 (Version None)
Quarter: 2010Q3

REPORT INFORMATION
  Report Type: 
  Country: None (occurrence: None)
  Receive Date: 20100719
  Receipt Date: 20100617
  Transmission Date: 20110219
  Serious: No
  Sender: FDA-Public Use
  Company Number: US-BAYER-201017204BCC

PATIENT
  Age: 56 Year
  Sex: Female
  Weight: 82 kg

DRUGS (5)
  1. ALEVE [Suspect]
     Indication: HEADACHE
     Dosage: BOTTLE COUNT 20S
     Route: 048
     Dates: start: 20100501
  2. ALEVE (CAPLET) [Suspect]
     Indication: HEADACHE
     Route: 048
     Dates: start: 20080101
  3. WELLBUTRIN [Concomitant]
     Route: 065
  4. ACTIVELLA [Concomitant]
     Route: 065
  5. AMBIEN [Concomitant]
     Route: 065

REACTIONS (1)
  - HEADACHE [None]
